FAERS Safety Report 19569651 (Version 1)
Quarter: 2021Q3

REPORT INFORMATION
  Report Type: Spontaneous
  Country: US (occurrence: US)
  Receive Date: 20210716
  Receipt Date: 20210716
  Transmission Date: 20211014
  Serious: Yes (Other)
  Sender: FDA-Public Use
  Company Number: US-PFIZER INC-2021841482

PATIENT
  Age: 48 Year
  Sex: Female

DRUGS (4)
  1. EUCRISA [Suspect]
     Active Substance: CRISABOROLE
     Dosage: 2 %, AS NEEDED (APPLY TO HANDS)
  2. EUCRISA [Suspect]
     Active Substance: CRISABOROLE
     Dosage: 1 %, AS NEEDED (APPLY TO HANDS)
  3. EUCRISA [Suspect]
     Active Substance: CRISABOROLE
     Dosage: 1 %, 2X/DAY (APPLY TO HANDS)
  4. EUCRISA [Suspect]
     Active Substance: CRISABOROLE
     Dosage: 2 %, 2X/DAY (APPLY TO HANDS)

REACTIONS (2)
  - Arthropathy [Unknown]
  - Haemorrhage [Unknown]
